FAERS Safety Report 17614705 (Version 1)
Quarter: 2020Q1

REPORT INFORMATION
  Report Type: Spontaneous
  Country: US (occurrence: US)
  Receive Date: 20200331
  Receipt Date: 20200331
  Transmission Date: 20200409
  Serious: Yes (Hospitalization)
  Sender: FDA-Public Use
  Company Number: None

PATIENT
  Age: 70 Year
  Sex: Male

DRUGS (1)
  1. MINOXIDIL (MINOXIDIL 2.5MG TAB) [Suspect]
     Active Substance: MINOXIDIL
     Indication: CARDIAC FAILURE CONGESTIVE
     Route: 048
     Dates: start: 20160725

REACTIONS (4)
  - Cardiac failure acute [None]
  - Condition aggravated [None]
  - Blood pressure systolic increased [None]
  - Weight increased [None]

NARRATIVE: CASE EVENT DATE: 20200317
